FAERS Safety Report 6407266-7 (Version None)
Quarter: 2009Q4

REPORT INFORMATION
  Report Type: 
  Country: None (occurrence: None)
  Receive Date: 20091020
  Receipt Date: 20091013
  Transmission Date: 20100525
  Serious: Yes (Death, Hospitalization)
  Sender: FDA-Public Use
  Company Number: A0787451A

PATIENT
  Age: 73 Year
  Sex: Female
  Weight: 74.1 kg

DRUGS (12)
  1. AVANDIA [Suspect]
     Indication: DIABETES MELLITUS
     Dosage: 8MG PER DAY
     Route: 048
     Dates: start: 19991201, end: 20010101
  2. COUMADIN [Concomitant]
  3. AXID [Concomitant]
  4. TRAZODONE [Concomitant]
  5. PREMARIN [Concomitant]
  6. TRAZODONE [Concomitant]
  7. AMARYL [Concomitant]
  8. INSULIN [Concomitant]
  9. ZOCOR [Concomitant]
  10. DILACOR XR [Concomitant]
     Dates: end: 20001201
  11. GLUCOPHAGE [Concomitant]
     Dates: start: 20001201
  12. LOTREL [Concomitant]
     Dates: start: 20001201

REACTIONS (3)
  - CARDIAC ARREST [None]
  - CARDIAC FAILURE CONGESTIVE [None]
  - CARDIOMYOPATHY [None]
